FAERS Safety Report 9365825 (Version 3)
Quarter: 2013Q3

REPORT INFORMATION
  Report Type: Spontaneous
  Country: IT (occurrence: IT)
  Receive Date: 20130625
  Receipt Date: 20130731
  Transmission Date: 20140515
  Serious: Yes (Hospitalization)
  Sender: FDA-Public Use
  Company Number: PHHY2013IT064261

PATIENT
  Sex: Female

DRUGS (10)
  1. CERTICAN [Suspect]
     Indication: LIVER TRANSPLANT
     Dosage: 6 MG, DAILY
     Route: 048
     Dates: start: 20110904
  2. PROGRAF [Suspect]
     Indication: LIVER TRANSPLANT
     Dosage: 5 MG, DAILY
     Route: 048
     Dates: start: 20110904
  3. PROGRAF [Suspect]
     Dosage: UNK
     Route: 048
  4. ALBUMIN HUMAN [Concomitant]
     Indication: HYPOALBUMINAEMIA
     Dosage: 200 ML, UNK
     Route: 042
     Dates: start: 20110904, end: 20110910
  5. TALAVIR [Concomitant]
     Indication: ANTIVIRAL PROPHYLAXIS
     Dosage: 1 G, UNK
     Route: 048
     Dates: start: 20110904, end: 20111204
  6. KONAKION [Concomitant]
     Indication: HYPOALBUMINAEMIA
     Dosage: 10 MG
     Route: 042
     Dates: start: 20110904, end: 20110910
  7. BACTRIM [Concomitant]
     Indication: ANTIVIRAL PROPHYLAXIS
     Dosage: 1600 MG, UNK
     Route: 048
     Dates: start: 20110904, end: 20110910
  8. TAZOCIN [Concomitant]
     Indication: BACILLUS INFECTION
     Dosage: 4 G, UNK
     Route: 042
     Dates: start: 20110904, end: 20110910
  9. TAVANIC [Concomitant]
     Indication: BACILLUS INFECTION
     Dosage: 500 MG
     Route: 048
     Dates: start: 20110904, end: 20110910
  10. LANSOX [Concomitant]
     Indication: OESOPHAGITIS
     Dosage: 60 MG
     Route: 048
     Dates: start: 20110904, end: 20111003

REACTIONS (1)
  - Epilepsy [Unknown]
